FAERS Safety Report 25407646 (Version 1)
Quarter: 2025Q2

REPORT INFORMATION
  Report Type: Spontaneous
  Country: CN (occurrence: CN)
  Receive Date: 20250606
  Receipt Date: 20250606
  Transmission Date: 20250717
  Serious: Yes (Hospitalization)
  Sender: PFIZER
  Company Number: CN-PFIZER INC-202500113347

PATIENT
  Age: 60 Year

DRUGS (1)
  1. LORBRENA [Suspect]
     Active Substance: LORLATINIB
     Dosage: 100 MG, 1X/DAY
     Route: 048

REACTIONS (4)
  - Blood cholesterol increased [Recovered/Resolved with Sequelae]
  - Blood triglycerides increased [Recovered/Resolved with Sequelae]
  - Obstructive pancreatitis [Recovered/Resolved with Sequelae]
  - Blood glucose increased [Not Recovered/Not Resolved]

NARRATIVE: CASE EVENT DATE: 20250501
